FAERS Safety Report 5415990-8 (Version None)
Quarter: 2007Q3

REPORT INFORMATION
  Report Type: 
  Country: None (occurrence: None)
  Receive Date: 20070713
  Receipt Date: 20070516
  Transmission Date: 20080115
  Serious: Yes (Hospitalization)
  Sender: FDA-Public Use
  Company Number: US-JNJFOC-20060903674

PATIENT
  Age: 27 Year
  Sex: Female
  Weight: 55 kg

DRUGS (4)
  1. ORTHO EVRA [Suspect]
     Indication: CONTRACEPTION
     Dates: start: 20030901, end: 20031223
  2. ZYRTEC [Concomitant]
  3. NASAL SPRAY (NASAL DECONGESTANTS FOR SYSTEMIC USE) [Concomitant]
  4. ATENOLOL [Concomitant]

REACTIONS (1)
  - SUBCLAVIAN VEIN THROMBOSIS [None]
